FAERS Safety Report 12275814 (Version 3)
Quarter: 2016Q2

REPORT INFORMATION
  Report Type: Report from Study
  Country: US (occurrence: US)
  Receive Date: 20160418
  Receipt Date: 20160607
  Transmission Date: 20160815
  Serious: Yes (Hospitalization)
  Sender: FDA-Public Use
  Company Number: US-ROCHE-1742777

PATIENT
  Age: 33 Year
  Sex: Female
  Weight: 69.7 kg

DRUGS (12)
  1. DUVELISIB [Suspect]
     Active Substance: DUVELISIB
     Indication: B-CELL LYMPHOMA
     Dosage: (ROUTE, FORM AND FREQUENCY AS PER PROTOCOL)?THE PATIENT RECEIVED MOST RECENT DOSE ON 11/APR/2016.
     Route: 048
     Dates: start: 20160104
  2. VALACYCLOVIR [Concomitant]
     Active Substance: VALACYCLOVIR HYDROCHLORIDE
     Dosage: QD
     Route: 065
     Dates: start: 20151105
  3. SERTRALINE [Concomitant]
     Active Substance: SERTRALINE HYDROCHLORIDE
     Dosage: QD
     Route: 065
     Dates: start: 20151105
  4. OBINUTUZUMAB [Suspect]
     Active Substance: OBINUTUZUMAB
     Indication: B-CELL LYMPHOMA
     Dosage: ON DAYS 1, 8, 15 AND 22 OF CYCLE 1, AND ON DAY 1 OF EACH SUBSEQUENT 28-DAY CYCLE (DOSE, ROUTE, FORM
     Route: 042
     Dates: start: 20160104
  5. IOHEXOL [Concomitant]
     Active Substance: IOHEXOL
     Route: 065
     Dates: start: 20151211
  6. GRANISETRON [Concomitant]
     Active Substance: GRANISETRON
     Route: 065
     Dates: start: 20160104
  7. DICLOFENAC POTASSIUM. [Concomitant]
     Active Substance: DICLOFENAC POTASSIUM
     Route: 065
     Dates: start: 20151124, end: 20160222
  8. DIPHENHYDRAMINE. [Concomitant]
     Active Substance: DIPHENHYDRAMINE
     Dosage: AS NEEDED.
     Route: 065
     Dates: start: 20160104
  9. ACETAMINOPHEN. [Concomitant]
     Active Substance: ACETAMINOPHEN
     Dosage: AS NEEDED.
     Route: 065
     Dates: start: 20160104
  10. TURMERIC [Concomitant]
     Active Substance: TURMERIC
     Dosage: QD
     Route: 048
  11. IBUPROFEN. [Concomitant]
     Active Substance: IBUPROFEN
     Dosage: TID OR AS NEEDED.
     Route: 065
     Dates: start: 20151211
  12. FAMOTIDINE. [Concomitant]
     Active Substance: FAMOTIDINE
     Dosage: 20 MG AS NEEDED.
     Route: 065
     Dates: start: 20160105

REACTIONS (1)
  - Colitis [Not Recovered/Not Resolved]

NARRATIVE: CASE EVENT DATE: 20160412
